FAERS Safety Report 7337323-2 (Version None)
Quarter: 2011Q1

REPORT INFORMATION
  Report Type: 
  Country: None (occurrence: None)
  Receive Date: 20110224
  Receipt Date: 20110214
  Transmission Date: 20110831
  Serious: Yes (Other)
  Sender: FDA-Public Use
  Company Number: TPA2011A00633

PATIENT
  Age: 65 Year
  Sex: Female

DRUGS (2)
  1. ACTOS [Suspect]
     Indication: TYPE 2 DIABETES MELLITUS
  2. LANTOS SOLOSTAR(INSULIN GLARGINE) [Suspect]
     Indication: TYPE 2 DIABETES MELLITUS
     Dosage: 38 IU, 1 IN 1 D, SUBCUTANEOUS ; 50 IU, 1 IN 1 D, SUBCUTANEOUS
     Route: 058

REACTIONS (2)
  - DIZZINESS [None]
  - HYPERGLYCAEMIA [None]
